FAERS Safety Report 9633240 (Version 1)
Quarter: 2013Q4

REPORT INFORMATION
  Report Type: Spontaneous
  Country: US (occurrence: None)
  Receive Date: 20131018
  Receipt Date: 20131018
  Transmission Date: 20140711
  Serious: Yes (Other)
  Sender: FDA-Public Use
  Company Number: None

PATIENT
  Age: 59 Year
  Sex: Male
  Weight: 136.08 kg

DRUGS (7)
  1. KEFLEX [Suspect]
     Indication: INFECTION
     Route: 048
     Dates: start: 20131005, end: 20131012
  2. METFORMIN [Concomitant]
  3. VESICARE [Concomitant]
  4. ATENOLOL [Concomitant]
  5. RANITIDINE [Concomitant]
  6. FUROSOMIDE [Concomitant]
  7. LEVOTHYROXINE [Concomitant]

REACTIONS (3)
  - Pruritus [None]
  - Swelling face [None]
  - Skin exfoliation [None]
